FAERS Safety Report 7850187-3 (Version None)
Quarter: 2011Q4

REPORT INFORMATION
  Report Type: 
  Country: None (occurrence: None)
  Receive Date: 20111024
  Receipt Date: 20111008
  Transmission Date: 20120403
  Serious: Yes (Hospitalization)
  Sender: FDA-Public Use
  Company Number: 2011AP002357

PATIENT
  Age: 67 Year
  Sex: Female

DRUGS (4)
  1. MYCOPHENOLATE MOFETIL [Suspect]
     Indication: WEGENER'S GRANULOMATOSIS
     Dosage: 500 MG; QD; 2000 MG;QD; 1500 MG; QD
  2. SILDENAFIL [Concomitant]
  3. PREDNISONE [Suspect]
     Indication: WEGENER'S GRANULOMATOSIS
  4. CYCLOPHOSPHAMIDE [Suspect]
     Indication: WEGENER'S GRANULOMATOSIS

REACTIONS (12)
  - COUGH [None]
  - DYSPNOEA EXERTIONAL [None]
  - CLUBBING [None]
  - BLOOD LACTATE DEHYDROGENASE INCREASED [None]
  - RENAL IMPAIRMENT [None]
  - PYREXIA [None]
  - OEDEMA PERIPHERAL [None]
  - MYOPATHY [None]
  - HYPERGLYCAEMIA [None]
  - SUPERINFECTION [None]
  - ALVEOLAR PROTEINOSIS [None]
  - HYPOXIA [None]
